FAERS Safety Report 5881965-8 (Version None)
Quarter: 2008Q3

REPORT INFORMATION
  Report Type: 
  Country: None (occurrence: None)
  Receive Date: 20080912
  Receipt Date: 20080729
  Transmission Date: 20090109
  Serious: No
  Sender: FDA-Public Use
  Company Number: US-ABBOTT-08P-163-0464139-00

PATIENT
  Sex: Female
  Weight: 90.8 kg

DRUGS (11)
  1. HUMIRA [Suspect]
     Indication: ARTHRITIS
     Route: 058
     Dates: start: 20080401
  2. METHOTREXATE [Concomitant]
     Indication: ARTHRITIS
     Route: 048
  3. CHOLINE MAGNESIUM TRISALICYLATE [Concomitant]
     Indication: ARTHRITIS
     Route: 048
  4. CALCIUM FOLINATE [Concomitant]
     Indication: ARTHRITIS
  5. METOPROLOL TARTRATE [Concomitant]
     Indication: HYPERTENSION
     Route: 048
  6. AJMALINE [Concomitant]
     Indication: HYPERTENSION
     Route: 048
  7. QUINAPRIL [Concomitant]
     Indication: HYPERTENSION
  8. PREDNISONE TAB [Concomitant]
     Indication: ARTHRITIS
     Route: 048
  9. HYDROCHLOROTHIAZIDE [Concomitant]
     Indication: HYPERTENSION
     Route: 048
  10. LANSOPRAZOLE [Concomitant]
     Indication: PROPHYLAXIS AGAINST GASTROINTESTINAL ULCER
     Route: 048
  11. DULOXETINE HYDROCHLORIDE [Concomitant]
     Indication: DEPRESSION
     Route: 048

REACTIONS (3)
  - ACCIDENTAL EXPOSURE [None]
  - INJECTION SITE IRRITATION [None]
  - INJECTION SITE PAIN [None]
